FAERS Safety Report 19946459 (Version 1)
Quarter: 2021Q4

REPORT INFORMATION
  Report Type: Spontaneous
  Country: DE (occurrence: DE)
  Receive Date: 20211012
  Receipt Date: 20211012
  Transmission Date: 20220303
  Serious: Yes (Hospitalization)
  Sender: FDA-Public Use
  Company Number: DE-ADRED-05742-02

PATIENT
  Age: 69 Year
  Sex: Female
  Weight: 52 kg

DRUGS (11)
  1. CANDESARTAN [Suspect]
     Active Substance: CANDESARTAN
     Indication: Product used for unknown indication
     Dosage: 8 MILLIGRAM, QD, 8 MG, 0-1-0-0, TABLETS
     Route: 048
  2. IBUPROFEN [Suspect]
     Active Substance: IBUPROFEN
     Indication: Product used for unknown indication
     Dosage: 400 MILLIGRAM, 400 MG, BEDARF, TABLETTEN
     Route: 048
  3. METAMIZOLE [Suspect]
     Active Substance: METAMIZOLE
     Indication: Product used for unknown indication
     Dosage: 20 GTT DROPS, Q8H, 500 MG/ML, 20-20-20-0, TROPFEN
     Route: 048
  4. PEMBROLIZUMAB [Suspect]
     Active Substance: PEMBROLIZUMAB
     Dosage: UNK, NK MG
  5. TRAMADOL [Concomitant]
     Active Substance: TRAMADOL
     Dosage: 20 GTT DROPS, Q8H, 100 MG/MK, 20-20-20-0, TROPFEN
     Route: 048
  6. CHOLECALCIFEROL [Concomitant]
     Active Substance: CHOLECALCIFEROL
     Dosage: 1 DOSAGE FORM, QW, 20000 IE, FREITAG 1, KAPSELN
     Route: 048
  7. ASPIRIN [Concomitant]
     Active Substance: ASPIRIN
     Dosage: 100 MILLIGRAM, QD, 100 MG, 1-0-0-0, TABLETS
     Route: 048
  8. ENOXAPARIN [Concomitant]
     Active Substance: ENOXAPARIN
     Dosage: 1 DOSAGE FORM, QD, 4000 IE, 0-0-0-1, FERTIGSPRITZEN
     Route: 058
  9. ACETYLCYSTEINE [Concomitant]
     Active Substance: ACETYLCYSTEINE
     Dosage: 600 MILLIGRAM, QD, 600 MG, 1-0-0-0, BRAUSETABLETTEN
     Route: 048
  10. SODIUM PICOSULFATE [Concomitant]
     Active Substance: SODIUM PICOSULFATE
     Dosage: 19 GTT DROPS, QD, 19-0-0-0, TROPFEN
     Route: 048
  11. PANTOPRAZOLE [Concomitant]
     Active Substance: PANTOPRAZOLE
     Dosage: 40 MILLIGRAM, QD, 40 MG, 1-0-0-0, TABLETS
     Route: 048

REACTIONS (4)
  - Pyrexia [Unknown]
  - Flatulence [Unknown]
  - Abdominal pain lower [Unknown]
  - Product prescribing error [Unknown]
